FAERS Safety Report 8402803-5 (Version None)
Quarter: 2012Q2

REPORT INFORMATION
  Report Type: 
  Country: None (occurrence: None)
  Receive Date: 20120601
  Receipt Date: 20120523
  Transmission Date: 20120825
  Serious: Yes (Hospitalization, Other)
  Sender: FDA-Public Use
  Company Number: US-ABBOTT-12P-163-0933845-00

PATIENT
  Sex: Female
  Weight: 65.83 kg

DRUGS (1)
  1. DEPAKOTE [Suspect]
     Indication: BIPOLAR DISORDER
     Dates: start: 20050101, end: 20090101

REACTIONS (17)
  - HEPATIC STEATOSIS [None]
  - WEIGHT LOSS POOR [None]
  - OBESITY [None]
  - WEIGHT INCREASED [None]
  - INSOMNIA [None]
  - SEXUAL RELATIONSHIP CHANGE [None]
  - TREMOR [None]
  - DIZZINESS [None]
  - PARTNER STRESS [None]
  - PARKINSON'S DISEASE [None]
  - NEOPLASM MALIGNANT [None]
  - DEPRESSION [None]
  - BIPOLAR DISORDER [None]
  - ALOPECIA [None]
  - DIABETES MELLITUS [None]
  - BODY MASS INDEX INCREASED [None]
  - BEDRIDDEN [None]
